FAERS Safety Report 6587662-8 (Version None)
Quarter: 2010Q1

REPORT INFORMATION
  Report Type: 
  Country: None (occurrence: None)
  Receive Date: 20100217
  Receipt Date: 20100217
  Transmission Date: 20100710
  Serious: Yes (Other)
  Sender: FDA-Public Use
  Company Number: None

PATIENT
  Age: 53 Year
  Sex: Male
  Weight: 136.0791 kg

DRUGS (1)
  1. REGLAN [Suspect]
     Indication: PREOPERATIVE CARE
     Dosage: UNKNOWN DOSE ONCE IV
     Route: 042
     Dates: start: 20090828, end: 20090828

REACTIONS (4)
  - AKATHISIA [None]
  - FATIGUE [None]
  - INSOMNIA [None]
  - MUSCULOSKELETAL STIFFNESS [None]
